FAERS Safety Report 13503633 (Version 3)
Quarter: 2017Q3

REPORT INFORMATION
  Report Type: Spontaneous
  Country: SK (occurrence: SK)
  Receive Date: 20170502
  Receipt Date: 20170724
  Transmission Date: 20171127
  Serious: Yes (Other)
  Sender: FDA-Public Use
  Company Number: SK-REGENERON PHARMACEUTICALS, INC.-2017-14976

PATIENT

DRUGS (16)
  1. EYLEA [Suspect]
     Active Substance: AFLIBERCEPT
     Indication: RETINAL VEIN OCCLUSION
     Dosage: BOTH EYE
     Route: 031
     Dates: start: 201410
  2. EYLEA [Suspect]
     Active Substance: AFLIBERCEPT
     Dosage: UNK, ONCE
     Dates: start: 20151026
  3. EYLEA [Suspect]
     Active Substance: AFLIBERCEPT
     Dosage: UNK, ONCE
     Route: 031
     Dates: start: 20141124
  4. EYLEA [Suspect]
     Active Substance: AFLIBERCEPT
     Dosage: UNK, ONCE
     Dates: start: 20141222
  5. EYLEA [Suspect]
     Active Substance: AFLIBERCEPT
     Dosage: UNK, ONCE
     Dates: start: 20151221
  6. EYLEA [Suspect]
     Active Substance: AFLIBERCEPT
     Dosage: UNK, ONCE
     Dates: start: 20160215
  7. EYLEA [Suspect]
     Active Substance: AFLIBERCEPT
     Dosage: UNK, ONCE
     Dates: start: 20161107
  8. EYLEA [Suspect]
     Active Substance: AFLIBERCEPT
     Dosage: AFTER 3 INTRAVITREAL INJECTIONS
     Route: 031
  9. EYLEA [Suspect]
     Active Substance: AFLIBERCEPT
     Dosage: UNK, Q2MON, RIGHT EYE, AFTER EVENT
     Route: 031
  10. EYLEA [Suspect]
     Active Substance: AFLIBERCEPT
     Dosage: UNK, ONCE
     Dates: start: 20150706
  11. EYLEA [Suspect]
     Active Substance: AFLIBERCEPT
     Dosage: UNK, ONCE
     Dates: start: 20150316
  12. EYLEA [Suspect]
     Active Substance: AFLIBERCEPT
     Dosage: BEFORE THE 13TH INTRAVITREAL INJECTION
     Route: 031
  13. EYLEA [Suspect]
     Active Substance: AFLIBERCEPT
     Dosage: UNK, ONCE
     Dates: start: 20150511
  14. EYLEA [Suspect]
     Active Substance: AFLIBERCEPT
     Dosage: TOTAL 12 INTRAVITREAL INJECTIONS PRIOR TO EVENT, RIGHT EYE
     Route: 031
     Dates: start: 20141027
  15. EYLEA [Suspect]
     Active Substance: AFLIBERCEPT
     Dosage: UNK, ONCE
     Dates: start: 20160919
  16. EYLEA [Suspect]
     Active Substance: AFLIBERCEPT
     Dosage: UNK, ONCE
     Dates: start: 20160718

REACTIONS (1)
  - Macular fibrosis [Unknown]

NARRATIVE: CASE EVENT DATE: 20161107
